FAERS Safety Report 5987242-9 (Version None)
Quarter: 2008Q4

REPORT INFORMATION
  Report Type: 
  Country: None (occurrence: None)
  Receive Date: 20081203
  Receipt Date: 20081125
  Transmission Date: 20090506
  Serious: Yes (Hospitalization)
  Sender: FDA-Public Use
  Company Number: CHNY2008DE04221

PATIENT
  Sex: Male
  Weight: 80 kg

DRUGS (3)
  1. NICOTINELL KAUGUMMI (NCH) (NICOTINE) CHEWABLE GUM [Suspect]
     Indication: SMOKING CESSATION THERAPY
     Dosage: 1-2 GUMS OF 4 MG DAILY, CHEWED
     Dates: start: 20081111
  2. ZYPREXA [Concomitant]
  3. ALCOHOL (ETHANOL) [Concomitant]

REACTIONS (8)
  - AGITATION [None]
  - ANXIETY [None]
  - DYSPNOEA [None]
  - HAEMOPTYSIS [None]
  - IRRITABILITY [None]
  - NAUSEA [None]
  - TREATMENT NONCOMPLIANCE [None]
  - WITHDRAWAL SYNDROME [None]
